FAERS Safety Report 14566561 (Version 1)
Quarter: 2018Q1

REPORT INFORMATION
  Report Type: Spontaneous
  Country: US (occurrence: US)
  Receive Date: 20180223
  Receipt Date: 20180223
  Transmission Date: 20180509
  Serious: No
  Sender: FDA-Public Use
  Company Number: US-BAYER-2018-033521

PATIENT
  Sex: Male

DRUGS (1)
  1. MIRALAX [Suspect]
     Active Substance: POLYETHYLENE GLYCOL 3350
     Dosage: UNK

REACTIONS (6)
  - Stress [Unknown]
  - Off label use [Unknown]
  - Blood pressure increased [Unknown]
  - Drug administration error [Unknown]
  - Product use in unapproved indication [Unknown]
  - Fear [Unknown]
